FAERS Safety Report 13747616 (Version 3)
Quarter: 2017Q3

REPORT INFORMATION
  Report Type: Report from Study
  Country: None (occurrence: US)
  Receive Date: 20170712
  Receipt Date: 20170831
  Transmission Date: 20171127
  Serious: Yes (Hospitalization)
  Sender: FDA-Public Use
  Company Number: US-VIFOR (INTERNATIONAL) INC.-VIT-2017-07470

PATIENT
  Sex: Female
  Weight: 99.88 kg

DRUGS (13)
  1. ROZEREM [Concomitant]
     Active Substance: RAMELTEON
  2. SODIUM BICARBONATE. [Concomitant]
     Active Substance: SODIUM BICARBONATE
  3. ERGOCALCIFEROL. [Concomitant]
     Active Substance: ERGOCALCIFEROL
  4. VENTOLINE [Concomitant]
     Active Substance: ALBUTEROL
  5. BUSPIRONE [Concomitant]
     Active Substance: BUSPIRONE HYDROCHLORIDE
  6. VELTASSA [Suspect]
     Active Substance: PATIROMER
     Indication: HYPERKALAEMIA
     Route: 048
  7. KIONEX [Concomitant]
     Active Substance: SODIUM POLYSTYRENE SULFONATE
  8. QUETIAPINE. [Concomitant]
     Active Substance: QUETIAPINE
  9. LOSARTAN. [Concomitant]
     Active Substance: LOSARTAN
  10. CARVEDILOL. [Concomitant]
     Active Substance: CARVEDILOL
  11. ZOLPIDEM [Concomitant]
     Active Substance: ZOLPIDEM\ZOLPIDEM TARTRATE
  12. ADVAIR DISKUS [Concomitant]
     Active Substance: FLUTICASONE PROPIONATE\SALMETEROL XINAFOATE
  13. SIMVASTATIN. [Concomitant]
     Active Substance: SIMVASTATIN

REACTIONS (3)
  - Hypertension [Recovered/Resolved]
  - Renal disorder [Unknown]
  - Drug dose omission [Unknown]

NARRATIVE: CASE EVENT DATE: 2017
